FAERS Safety Report 9920292 (Version 3)
Quarter: 2014Q1

REPORT INFORMATION
  Report Type: Report from Study
  Country: US (occurrence: US)
  Receive Date: 20140224
  Receipt Date: 20140318
  Transmission Date: 20141002
  Serious: Yes (Hospitalization)
  Sender: FDA-Public Use
  Company Number: US-BRISTOL-MYERS SQUIBB COMPANY-17405135

PATIENT
  Age: 75 Year
  Sex: Female

DRUGS (13)
  1. DAPAGLIFLOZIN [Suspect]
     Indication: TYPE 2 DIABETES MELLITUS
     Route: 048
     Dates: start: 20130110, end: 20130207
  2. SAXAGLIPTIN [Suspect]
     Indication: TYPE 2 DIABETES MELLITUS
     Route: 048
     Dates: start: 20130110, end: 20130207
  3. METFORMIN HCL [Suspect]
     Indication: TYPE 2 DIABETES MELLITUS
  4. LOPRESSOR [Concomitant]
  5. ASPIRIN [Concomitant]
  6. SUBLINGUAL NITROGLYCERIN [Concomitant]
     Route: 060
  7. NITROGLYCERIN OINTMENT [Concomitant]
     Dosage: 1 INCH EVERY 6 HOURS
     Route: 061
  8. MORPHINE [Concomitant]
     Route: 042
  9. ZOFRAN [Concomitant]
  10. DILAUDID [Concomitant]
  11. METOPROLOL [Concomitant]
  12. HYDROMORPHONE [Concomitant]
  13. ONDANSETRON [Concomitant]

REACTIONS (1)
  - Acute myocardial infarction [Recovered/Resolved]
